FAERS Safety Report 23249833 (Version 1)
Quarter: 2023Q4

REPORT INFORMATION
  Report Type: Spontaneous
  Country: ES (occurrence: ES)
  Receive Date: 20231201
  Receipt Date: 20231201
  Transmission Date: 20240109
  Serious: Yes (Hospitalization, Other)
  Sender: FDA-Public Use
  Company Number: ES-Accord-390737

PATIENT
  Age: 34 Year
  Sex: Female
  Weight: 52 kg

DRUGS (4)
  1. OXALIPLATIN [Suspect]
     Active Substance: OXALIPLATIN
     Indication: Colorectal cancer
     Dosage: 130.9 MILLIGRAM, EVERY 28 DAYS
     Route: 065
     Dates: start: 20230705, end: 20230720
  2. FLUOROURACIL [Suspect]
     Active Substance: FLUOROURACIL
     Indication: Colorectal cancer
     Dosage: 4312 MILLIGRAM, EVERY 28 DAYSUNK
     Route: 065
     Dates: start: 20230705, end: 20230720
  3. ENCORAFENIB [Suspect]
     Active Substance: ENCORAFENIB
     Indication: Colorectal cancer
     Dosage: 300 MILLIGRAM, DAILY
     Route: 048
     Dates: start: 20230705, end: 20230801
  4. CETUXIMAB [Suspect]
     Active Substance: CETUXIMAB
     Indication: Colorectal cancer
     Dosage: 770 MILLIGRAM,EVERY 28 DAYS
     Route: 065
     Dates: start: 20230705, end: 20230720

REACTIONS (1)
  - Abdominal sepsis [Recovered/Resolved]

NARRATIVE: CASE EVENT DATE: 20230801
